FAERS Safety Report 9216429 (Version 1)
Quarter: 2013Q2

REPORT INFORMATION
  Report Type: Spontaneous
  Country: US (occurrence: None)
  Receive Date: 20130402
  Receipt Date: 20130402
  Transmission Date: 20140414
  Serious: Yes (Hospitalization)
  Sender: FDA-Public Use
  Company Number: TPA2013A02442

PATIENT
  Age: 62 Year
  Sex: Female

DRUGS (1)
  1. EDARBI [Suspect]

REACTIONS (2)
  - Chest pain [None]
  - Blood pressure decreased [None]
